FAERS Safety Report 4333015-2 (Version None)
Quarter: 2004Q2

REPORT INFORMATION
  Report Type: 
  Country: None (occurrence: None)
  Receive Date: 20040401
  Receipt Date: 20040316
  Transmission Date: 20050107
  Serious: Yes (Other)
  Sender: FDA-Public Use
  Company Number: TOS-000618

PATIENT
  Age: 46 Year
  Sex: Female
  Weight: 34.2 kg

DRUGS (4)
  1. TOSITUMOMAB, IODINE I 131 TOSITUMOMAB (TOSITUMOMAB, IODINE I 131 TOSIT [Suspect]
     Indication: NON-HODGKIN'S LYMPHOMA
     Dosage: SEE IMAGE INTRAVENOUS
     Route: 042
     Dates: start: 20000517, end: 20000517
  2. TOSITUMOMAB, IODINE I 131 TOSITUMOMAB (TOSITUMOMAB, IODINE I 131 TOSIT [Suspect]
     Indication: NON-HODGKIN'S LYMPHOMA
     Dosage: SEE IMAGE INTRAVENOUS
     Route: 042
     Dates: start: 20000525, end: 20000525
  3. TOSITUMOMAB, IODINE I 131 TOSITUMOMAB (TOSITUMOMAB, IODONE I 131 TOSIT [Suspect]
  4. TOSITUMOMAB, IODINE I 131 TOSITUMOMAB (TOSITUMOMAB, IODINE I 131 TOSIT [Suspect]

REACTIONS (22)
  - ACUTE MYELOID LEUKAEMIA [None]
  - CHEST DISCOMFORT [None]
  - CHEST PAIN [None]
  - CHROMOSOME ABNORMALITY [None]
  - DISEASE PROGRESSION [None]
  - DYSPNOEA EXERTIONAL [None]
  - FLUSHING [None]
  - HEADACHE [None]
  - INFECTION [None]
  - INFUSION RELATED REACTION [None]
  - LYMPHADENOPATHY [None]
  - MALIGNANT NEOPLASM PROGRESSION [None]
  - MYELODYSPLASTIC SYNDROME [None]
  - NASAL CONGESTION [None]
  - NON-HODGKIN'S LYMPHOMA TRANSFORMED RECURRENT [None]
  - PANCYTOPENIA [None]
  - POST PROCEDURAL COMPLICATION [None]
  - POST PROCEDURAL HAEMORRHAGE [None]
  - PRURITUS [None]
  - PYREXIA [None]
  - REFRACTORY ANAEMIA WITH AN EXCESS OF BLASTS [None]
  - RETROPERITONEAL HAEMATOMA [None]
